FAERS Safety Report 16185540 (Version 1)
Quarter: 2019Q2

REPORT INFORMATION
  Report Type: Spontaneous
  Country: US (occurrence: US)
  Receive Date: 20190411
  Receipt Date: 20190411
  Transmission Date: 20190711
  Serious: Yes (Disabling, Other)
  Sender: FDA-Public Use
  Company Number: US-BAYER-2019-067407

PATIENT
  Age: 67 Year
  Sex: Female
  Weight: 65.77 kg

DRUGS (1)
  1. CIPRO [Suspect]
     Active Substance: CIPROFLOXACIN HYDROCHLORIDE
     Dosage: UNK

REACTIONS (8)
  - Joint injury [None]
  - Carpal tunnel syndrome [None]
  - Pain in extremity [None]
  - Arthritis [None]
  - Tendon injury [Recovering/Resolving]
  - Peripheral swelling [None]
  - Arthralgia [None]
  - Joint swelling [None]
